FAERS Safety Report 14396253 (Version 3)
Quarter: 2020Q1

REPORT INFORMATION
  Report Type: Report from Study
  Country: US (occurrence: US)
  Receive Date: 20180116
  Receipt Date: 20200221
  Transmission Date: 20200409
  Serious: Yes (Hospitalization)
  Sender: FDA-Public Use
  Company Number: US-ACTELION-A-NJ2018-165521

PATIENT
  Age: 3 Year
  Sex: Female

DRUGS (2)
  1. TRACLEER [Suspect]
     Active Substance: BOSENTAN
     Dosage: 62.5 MG, QPM
     Route: 048
     Dates: start: 20171128
  2. TRACLEER [Suspect]
     Active Substance: BOSENTAN
     Indication: PULMONARY ARTERIAL HYPERTENSION
     Dosage: 32 MG, BID
     Route: 048
     Dates: start: 20170901

REACTIONS (3)
  - Hospitalisation [Unknown]
  - Pneumonia aspiration [Unknown]
  - Heart transplant [Unknown]

NARRATIVE: CASE EVENT DATE: 20171222
